FAERS Safety Report 6419605-1 (Version None)
Quarter: 2009Q4

REPORT INFORMATION
  Report Type: 
  Country: None (occurrence: None)
  Receive Date: 20091029
  Receipt Date: 20091023
  Transmission Date: 20100525
  Serious: Yes (Hospitalization, Other)
  Sender: FDA-Public Use
  Company Number: US-AVENTIS-200916702EU

PATIENT
  Age: 74 Year
  Sex: Male
  Weight: 92.3 kg

DRUGS (6)
  1. LASIX [Suspect]
  2. REVLIMID [Suspect]
     Dosage: DOSE: 25 MG (DAILY DAYS 1-21/28 DAYS)
     Route: 048
     Dates: start: 20090202, end: 20090719
  3. DEXAMETHASONE [Suspect]
     Dosage: DOSE: 40 MG (DAYS 1, 8, 15, AND 22)
     Route: 048
     Dates: start: 20090202, end: 20090720
  4. ASPIRIN [Concomitant]
     Route: 048
  5. COREG [Concomitant]
     Dosage: DOSE: UNK
  6. PACKED RED BLOOD CELL TRANSFUSION [Concomitant]
     Route: 042

REACTIONS (4)
  - ATRIAL FIBRILLATION [None]
  - CARDIAC FAILURE CONGESTIVE [None]
  - HYPOTENSION [None]
  - SYNCOPE [None]
